FAERS Safety Report 7866859-0 (Version None)
Quarter: 2011Q4

REPORT INFORMATION
  Report Type: 
  Country: None (occurrence: None)
  Receive Date: 20111026
  Receipt Date: 20111019
  Transmission Date: 20120403
  Serious: Yes (Hospitalization, Other)
  Sender: FDA-Public Use
  Company Number: AUR-APL-2011-05399

PATIENT
  Age: 22 Year
  Sex: Female

DRUGS (1)
  1. AMLODIPINE [Suspect]
     Indication: PRODUCT USED FOR UNKNOWN INDICATION
     Dosage: (280 MG), ORAL
     Route: 048

REACTIONS (9)
  - HYPOXIA [None]
  - HYPOCALCAEMIA [None]
  - VENOUS PRESSURE JUGULAR INCREASED [None]
  - OVERDOSE [None]
  - NON-CARDIOGENIC PULMONARY OEDEMA [None]
  - DYSPNOEA [None]
  - CARDIAC FAILURE [None]
  - PLEURAL EFFUSION [None]
  - TROPONIN INCREASED [None]
